FAERS Safety Report 7559753-6 (Version None)
Quarter: 2011Q2

REPORT INFORMATION
  Report Type: 
  Country: None (occurrence: None)
  Receive Date: 20110621
  Receipt Date: 20110609
  Transmission Date: 20111010
  Serious: Yes (Hospitalization)
  Sender: FDA-Public Use
  Company Number: JP-ACTELION-A-CH2011-50130

PATIENT
  Age: 62 Year
  Sex: Male

DRUGS (2)
  1. TRACLEER [Suspect]
     Dosage: 125 MG, BID
     Route: 048
  2. TRACLEER [Suspect]
     Indication: PULMONARY ARTERIAL HYPERTENSION
     Dosage: 62.5 MG, BID
     Route: 048
     Dates: start: 20051101

REACTIONS (10)
  - OROPHARYNGEAL PAIN [None]
  - PYREXIA [None]
  - BRAIN NATRIURETIC PEPTIDE INCREASED [None]
  - BLOOD PRESSURE DECREASED [None]
  - ENDOTRACHEAL INTUBATION [None]
  - COUGH [None]
  - NASOPHARYNGITIS [None]
  - CARDIAC FAILURE [None]
  - PULMONARY CONGESTION [None]
  - DENTAL CARE [None]
